FAERS Safety Report 7382859-1 (Version None)
Quarter: 2011Q1

REPORT INFORMATION
  Report Type: 
  Country: None (occurrence: None)
  Receive Date: 20110323
  Receipt Date: 20110323
  Transmission Date: 20110831
  Serious: No
  Sender: FDA-Public Use
  Company Number: None

PATIENT
  Sex: Male
  Weight: 99.7913 kg

DRUGS (1)
  1. TRIAD ALCOHOL SWABS 100 PACKETS IN BOX TRIAD GROUP, INC. [Suspect]
     Indication: THERAPEUTIC SKIN CARE TOPICAL
     Dosage: 1 PAD 5X/DAY CUTANEOUS
     Route: 003
     Dates: start: 20110214, end: 20110328

REACTIONS (7)
  - BLOOD PRESSURE INCREASED [None]
  - FLUSHING [None]
  - DIZZINESS [None]
  - TACHYCARDIA [None]
  - APPLICATION SITE INFECTION [None]
  - PRODUCT QUALITY ISSUE [None]
  - SKIN INFECTION [None]
